FAERS Safety Report 8066219-6 (Version None)
Quarter: 2012Q1

REPORT INFORMATION
  Report Type: 
  Country: None (occurrence: None)
  Receive Date: 20120124
  Receipt Date: 20120117
  Transmission Date: 20120608
  Serious: Yes (Death, Other)
  Sender: FDA-Public Use
  Company Number: JP-ROCHE-757663

PATIENT
  Sex: Male

DRUGS (12)
  1. AVASTIN [Suspect]
     Route: 041
     Dates: start: 20101130, end: 20101221
  2. PARAPLATIN [Concomitant]
     Dosage: DOSAGE IS UNCERTAIN
     Route: 042
     Dates: start: 20110412, end: 20110412
  3. ALIMTA [Concomitant]
     Route: 042
     Dates: start: 20100804, end: 20100804
  4. PARAPLATIN [Concomitant]
     Route: 042
     Dates: start: 20101019, end: 20101109
  5. TAXOTERE [Concomitant]
     Indication: LUNG ADENOCARCINOMA METASTATIC
     Route: 041
     Dates: start: 20100824, end: 20100921
  6. GEMZAR [Concomitant]
     Route: 041
     Dates: start: 20101130, end: 20111022
  7. TAXOL [Concomitant]
     Indication: LUNG ADENOCARCINOMA METASTATIC
     Route: 041
     Dates: start: 20110412, end: 20110412
  8. AVASTIN [Suspect]
     Indication: LUNG ADENOCARCINOMA METASTATIC
     Route: 041
     Dates: start: 20100310, end: 20100921
  9. CISPLATIN [Concomitant]
     Indication: LUNG ADENOCARCINOMA METASTATIC
     Route: 041
     Dates: start: 20101130, end: 20111022
  10. PARAPLATIN [Concomitant]
     Indication: LUNG ADENOCARCINOMA METASTATIC
     Dosage: DOSAGE IS UNCERTAIN
     Route: 041
     Dates: start: 20100310, end: 20100713
  11. ALIMTA [Concomitant]
     Indication: LUNG ADENOCARCINOMA METASTATIC
     Route: 041
     Dates: start: 20100310, end: 20100713
  12. ALIMTA [Concomitant]
     Route: 042
     Dates: start: 20101019, end: 20101109

REACTIONS (2)
  - DEEP VEIN THROMBOSIS [None]
  - DISEASE PROGRESSION [None]
